FAERS Safety Report 9485910 (Version 2)
Quarter: 2013Q4

REPORT INFORMATION
  Report Type: Report from Study
  Country: FR (occurrence: FR)
  Receive Date: 20130829
  Receipt Date: 20131001
  Transmission Date: 20140711
  Serious: Yes (Hospitalization)
  Sender: FDA-Public Use
  Company Number: FR-ROCHE-1267700

PATIENT
  Sex: Male
  Weight: 87.2 kg

DRUGS (7)
  1. MYCOPHENOLATE MOFETIL [Suspect]
     Indication: PROPHYLAXIS AGAINST TRANSPLANT REJECTION
     Route: 048
     Dates: start: 20071202
  2. RAPAMUNE [Suspect]
     Indication: PROPHYLAXIS AGAINST TRANSPLANT REJECTION
     Route: 048
     Dates: start: 20101007, end: 20120208
  3. TACROLIMUS [Concomitant]
     Indication: PROPHYLAXIS AGAINST TRANSPLANT REJECTION
     Route: 065
  4. CADUET [Concomitant]
     Indication: HYPERTENSION
     Route: 048
     Dates: start: 201001
  5. MIMPARA [Concomitant]
     Indication: HYPERPARATHYROIDISM
     Route: 048
     Dates: start: 200712
  6. TENORMINE [Concomitant]
     Indication: HYPERTENSION
     Route: 048
     Dates: start: 200901
  7. UVEDOSE [Concomitant]
     Dosage: 2 VIALS MONTHLY
     Route: 048
     Dates: start: 201201

REACTIONS (1)
  - Transplant rejection [Not Recovered/Not Resolved]
